FAERS Safety Report 14797060 (Version 1)
Quarter: 2018Q2

REPORT INFORMATION
  Report Type: Spontaneous
  Country: US (occurrence: US)
  Receive Date: 20180423
  Receipt Date: 20180423
  Transmission Date: 20180711
  Serious: Yes (Other)
  Sender: FDA-Public Use
  Company Number: US-SA-2017SA211947

PATIENT
  Age: 71 Year
  Sex: Male

DRUGS (9)
  1. ENOXAPARIN SODIUM - WINTHROP [Suspect]
     Active Substance: ENOXAPARIN SODIUM
     Indication: ATRIAL FIBRILLATION
     Route: 065
     Dates: start: 20171014, end: 20171015
  2. WARFARIN [Suspect]
     Active Substance: WARFARIN
     Route: 065
  3. ASA [Suspect]
     Active Substance: ASPIRIN
     Route: 065
  4. ENOXAPARIN SODIUM - WINTHROP [Suspect]
     Active Substance: ENOXAPARIN SODIUM
     Indication: ATRIAL FIBRILLATION
     Route: 065
     Dates: start: 20171016, end: 20171016
  5. WARFARIN [Suspect]
     Active Substance: WARFARIN
     Route: 065
  6. WARFARIN [Suspect]
     Active Substance: WARFARIN
     Route: 065
  7. WARFARIN [Suspect]
     Active Substance: WARFARIN
     Route: 065
  8. ENOXAPARIN SODIUM - WINTHROP [Suspect]
     Active Substance: ENOXAPARIN SODIUM
     Indication: ATRIAL FIBRILLATION
     Route: 065
     Dates: start: 20171014, end: 20171015
  9. ENOXAPARIN SODIUM - WINTHROP [Suspect]
     Active Substance: ENOXAPARIN SODIUM
     Indication: ATRIAL FIBRILLATION
     Route: 065
     Dates: start: 20171016, end: 20171016

REACTIONS (3)
  - Contusion [Not Recovered/Not Resolved]
  - Mucosal haemorrhage [Not Recovered/Not Resolved]
  - Haemorrhage [Not Recovered/Not Resolved]
